APPROVED DRUG PRODUCT: ILOPERIDONE
Active Ingredient: ILOPERIDONE
Strength: 1MG
Dosage Form/Route: TABLET;ORAL
Application: A206890 | Product #001
Applicant: LUPIN LTD
Approved: May 5, 2022 | RLD: No | RS: No | Type: DISCN